FAERS Safety Report 9495739 (Version 1)
Quarter: 2013Q3

REPORT INFORMATION
  Report Type: Spontaneous
  Country: GB (occurrence: GB)
  Receive Date: 20130903
  Receipt Date: 20130903
  Transmission Date: 20140515
  Serious: Yes (Disabling)
  Sender: FDA-Public Use
  Company Number: GB-TEVA-429175ISR

PATIENT
  Age: 53 Year
  Sex: Male

DRUGS (10)
  1. VENLAFAXINE [Suspect]
     Dosage: 150 MILLIGRAM DAILY; IN THE MORNING
  2. LAMOTRIGINE [Suspect]
     Dosage: 400 MILLIGRAM DAILY;
  3. LITHIUM [Suspect]
     Dosage: 1000 MILLIGRAM DAILY; AT NIGHT
  4. ARIPIPRAZOLE [Suspect]
     Dosage: 15 MILLIGRAM DAILY; EVERY MORNING
  5. PERINDOPRIL [Concomitant]
     Dosage: 8 MILLIGRAM DAILY;
  6. INDAPAMIDE [Concomitant]
     Dosage: 1.5 MILLIGRAM DAILY;
  7. ATORVASTATIN [Concomitant]
     Dosage: 40 MILLIGRAM DAILY; EVERY NIGHT
  8. INSULIN GLARGINE [Concomitant]
  9. HUMALOG [Concomitant]
     Dosage: 100UNITS/ML SOLUTION FOR INJECTION
  10. BLOOD PRESSURE MEDICATION [Concomitant]

REACTIONS (5)
  - Balance disorder [Not Recovered/Not Resolved]
  - Dysphagia [Not Recovered/Not Resolved]
  - Hyperhidrosis [Not Recovered/Not Resolved]
  - Tremor [Unknown]
  - Fall [Unknown]
